FAERS Safety Report 8019427-4 (Version None)
Quarter: 2012Q1

REPORT INFORMATION
  Report Type: 
  Country: None (occurrence: None)
  Receive Date: 20120103
  Receipt Date: 20111222
  Transmission Date: 20120608
  Serious: Yes (Hospitalization, Other)
  Sender: FDA-Public Use
  Company Number: PHFR2011GB04818

PATIENT
  Sex: Male

DRUGS (4)
  1. CLOZARIL [Suspect]
     Indication: SCHIZOPHRENIA
     Dosage: 575 MG, UNK
     Route: 048
     Dates: start: 20050106
  2. CLOZARIL [Suspect]
     Dosage: 50 MG, UNK
     Dates: end: 20111214
  3. CLOZARIL [Suspect]
     Dosage: 575 MG, UNK
     Route: 048
  4. AMISULPRIDE [Concomitant]
     Dosage: UNK UKN, UNK

REACTIONS (11)
  - DEPRESSION [None]
  - SALIVARY HYPERSECRETION [None]
  - VIITH NERVE PARALYSIS [None]
  - VISUAL IMPAIRMENT [None]
  - TREATMENT NONCOMPLIANCE [None]
  - MOVEMENT DISORDER [None]
  - SPEECH DISORDER [None]
  - STARING [None]
  - TRANSIENT ISCHAEMIC ATTACK [None]
  - PARANOIA [None]
  - CEREBROVASCULAR ACCIDENT [None]
